FAERS Safety Report 11929597 (Version 1)
Quarter: 2016Q1

REPORT INFORMATION
  Report Type: Spontaneous
  Country: SE (occurrence: SE)
  Receive Date: 20160120
  Receipt Date: 20160120
  Transmission Date: 20160526
  Serious: Yes (Hospitalization)
  Sender: FDA-Public Use
  Company Number: SE-ASTRAZENECA-2016SE03106

PATIENT
  Age: 90 Year
  Sex: Female

DRUGS (4)
  1. IMDUR [Suspect]
     Active Substance: ISOSORBIDE MONONITRATE
     Route: 048
  2. ATACAND [Suspect]
     Active Substance: CANDESARTAN CILEXETIL
     Route: 048
  3. SPIRONOLACTONE. [Suspect]
     Active Substance: SPIRONOLACTONE
     Route: 065
     Dates: end: 20151023
  4. WARAN [Concomitant]
     Active Substance: WARFARIN SODIUM

REACTIONS (1)
  - Syncope [Unknown]

NARRATIVE: CASE EVENT DATE: 20151023
